FAERS Safety Report 11965698 (Version 2)
Quarter: 2016Q3

REPORT INFORMATION
  Report Type: Report from Study
  Country: PT (occurrence: PT)
  Receive Date: 20160127
  Receipt Date: 20160901
  Transmission Date: 20161109
  Serious: Yes (Other)
  Sender: FDA-Public Use
  Company Number: PHHY2016PT008347

PATIENT
  Age: 35 Year
  Sex: Female

DRUGS (1)
  1. GILENYA [Suspect]
     Active Substance: FINGOLIMOD HYDROCHLORIDE
     Indication: MULTIPLE SCLEROSIS
     Dosage: 0.5 MG
     Route: 065
     Dates: start: 20141222

REACTIONS (5)
  - Vision blurred [Recovering/Resolving]
  - Central nervous system lesion [Unknown]
  - Muscle spasms [Unknown]
  - Dyskinesia [Recovering/Resolving]
  - Nervousness [Unknown]

NARRATIVE: CASE EVENT DATE: 201510
